FAERS Safety Report 9979297 (Version 1)
Quarter: 2014Q1

REPORT INFORMATION
  Report Type: Report from Study
  Country: US (occurrence: US)
  Receive Date: 20140306
  Receipt Date: 20140306
  Transmission Date: 20141002
  Serious: No
  Sender: FDA-Public Use
  Company Number: US-ABBVIE-13P-163-1169826-00

PATIENT
  Sex: Male

DRUGS (1)
  1. HUMIRA [Suspect]
     Indication: CROHN^S DISEASE
     Dates: start: 2007

REACTIONS (6)
  - Inflammation [Recovering/Resolving]
  - Staphylococcal skin infection [Recovering/Resolving]
  - Localised infection [Recovering/Resolving]
  - Furuncle [Recovering/Resolving]
  - Furuncle [Recovering/Resolving]
  - Staphylococcal skin infection [Recovering/Resolving]
